FAERS Safety Report 4779987-3 (Version None)
Quarter: 2005Q3

REPORT INFORMATION
  Report Type: 
  Country: None (occurrence: None)
  Receive Date: 20050914
  Receipt Date: 20050512
  Transmission Date: 20060218
  Serious: Yes (Death)
  Sender: FDA-Public Use
  Company Number: 163-20785-05050225

PATIENT
  Age: 73 Year
  Sex: Female

DRUGS (3)
  1. THALOMID [Suspect]
     Indication: MALIGNANT MELANOMA
     Dosage: 100-200MG, DAILY, ORAL
     Route: 048
  2. TEMODAR [Suspect]
     Indication: MALIGNANT MELANOMA
  3. DILAUDID [Concomitant]

REACTIONS (1)
  - DISEASE PROGRESSION [None]
